FAERS Safety Report 24997566 (Version 1)
Quarter: 2025Q1

REPORT INFORMATION
  Report Type: Spontaneous
  Country: US (occurrence: US)
  Receive Date: 20250222
  Receipt Date: 20250222
  Transmission Date: 20250409
  Serious: No
  Sender: ABBVIE
  Company Number: US-ABBVIE-6140300

PATIENT
  Sex: Male

DRUGS (3)
  1. VYALEV [Suspect]
     Active Substance: FOSCARBIDOPA\FOSLEVODOPA
     Indication: On and off phenomenon
     Route: 058
     Dates: start: 20250116
  2. VYALEV [Suspect]
     Active Substance: FOSCARBIDOPA\FOSLEVODOPA
     Indication: Parkinson^s disease
  3. RASAGILINE [Concomitant]
     Active Substance: RASAGILINE
     Indication: Product used for unknown indication

REACTIONS (7)
  - Vision blurred [Unknown]
  - Infusion site reaction [Recovering/Resolving]
  - Weight increased [Recovering/Resolving]
  - Abdominal distension [Recovering/Resolving]
  - Infusion site discomfort [Recovering/Resolving]
  - Infusion site rash [Recovering/Resolving]
  - Infusion site papule [Recovering/Resolving]

NARRATIVE: CASE EVENT DATE: 20250101
